FAERS Safety Report 4728002-6 (Version None)
Quarter: 2005Q3

REPORT INFORMATION
  Report Type: 
  Country: None (occurrence: None)
  Receive Date: 20050725
  Receipt Date: 20050401
  Transmission Date: 20060218
  Serious: No
  Sender: FDA-Public Use
  Company Number: USA050494759

PATIENT
  Age: 35 Year
  Sex: Female

DRUGS (3)
  1. STRATTERA [Suspect]
     Dosage: 40 MG/2 DAY
     Dates: start: 20041001
  2. ADDERALL 30 [Concomitant]
  3. YASMIN [Concomitant]

REACTIONS (1)
  - OEDEMA PERIPHERAL [None]
